FAERS Safety Report 12428851 (Version 3)
Quarter: 2016Q2

REPORT INFORMATION
  Report Type: Spontaneous
  Country: GB (occurrence: GB)
  Receive Date: 20160602
  Receipt Date: 20160622
  Transmission Date: 20160815
  Serious: Yes (Life-Threatening, Disabling, Other)
  Sender: FDA-Public Use
  Company Number: GB-FERRINGPH-2016FE02329

PATIENT

DRUGS (3)
  1. ENTONOX [Concomitant]
     Active Substance: NITROUS OXIDE\OXYGEN
     Indication: PRODUCT USED FOR UNKNOWN INDICATION
     Route: 065
  2. PROPESS [Suspect]
     Active Substance: DINOPROSTONE
     Indication: LABOUR INDUCTION
     Dosage: 10 MG, ONCE/SINGLE
     Route: 067
     Dates: start: 20160510, end: 20160511
  3. FERROUS SULFATE. [Concomitant]
     Active Substance: FERROUS SULFATE
     Indication: PRODUCT USED FOR UNKNOWN INDICATION

REACTIONS (3)
  - Postpartum haemorrhage [Unknown]
  - Incorrect drug administration duration [Recovered/Resolved]
  - Uterine rupture [Recovered/Resolved with Sequelae]

NARRATIVE: CASE EVENT DATE: 20160511
